FAERS Safety Report 7418102-4 (Version None)
Quarter: 2011Q2

REPORT INFORMATION
  Report Type: 
  Country: None (occurrence: None)
  Receive Date: 20110415
  Receipt Date: 20110408
  Transmission Date: 20111010
  Serious: Yes (Other)
  Sender: FDA-Public Use
  Company Number: BR-GILEAD-2011-0038199

PATIENT
  Sex: Male
  Weight: 53 kg

DRUGS (3)
  1. LAMIVUDINE [Concomitant]
     Indication: HIV INFECTION
     Dates: start: 20110207
  2. EFAVIRENZ [Concomitant]
     Indication: HIV INFECTION
     Dates: start: 20110207
  3. VIREAD [Suspect]
     Indication: HIV INFECTION
     Dates: start: 20110207

REACTIONS (1)
  - CEREBRAL TOXOPLASMOSIS [None]
